FAERS Safety Report 16979553 (Version 4)
Quarter: 2019Q4

REPORT INFORMATION
  Report Type: Spontaneous
  Country: JP (occurrence: JP)
  Receive Date: 20191031
  Receipt Date: 20191220
  Transmission Date: 20200122
  Serious: Yes (Other)
  Sender: FDA-Public Use
  Company Number: JP-ASTRAZENECA-2019SF52680

PATIENT
  Age: 17309 Day
  Sex: Male
  Weight: 64 kg

DRUGS (11)
  1. PREDONINE [Concomitant]
     Active Substance: PREDNISOLONE
     Route: 048
     Dates: start: 20191021, end: 20191024
  2. LOXONIN [Suspect]
     Active Substance: LOXOPROFEN SODIUM
     Indication: PYREXIA
     Dosage: 60.0MG UNKNOWN
     Route: 048
     Dates: start: 20191021, end: 20191021
  3. MONTELUKAST OD [Concomitant]
     Indication: ASTHMA
     Route: 048
  4. XYZAL [Concomitant]
     Active Substance: LEVOCETIRIZINE DIHYDROCHLORIDE
     Indication: ASTHMA
     Route: 048
  5. FASENRA [Suspect]
     Active Substance: BENRALIZUMAB
     Indication: ASTHMA
     Route: 058
     Dates: start: 20191021, end: 20191021
  6. SPIRIVA [Concomitant]
     Active Substance: TIOTROPIUM BROMIDE MONOHYDRATE
     Indication: ASTHMA
     Route: 055
  7. ADRENALINE [Concomitant]
     Active Substance: EPINEPHRINE
     Indication: ASTHMA
     Dosage: 0.3ML UNKNOWN
     Route: 058
     Dates: start: 20191021, end: 20191021
  8. ALESION [Concomitant]
     Active Substance: EPINASTINE HYDROCHLORIDE
     Indication: ASTHMA
     Route: 048
     Dates: start: 20191009
  9. MEPTIN AIR [Concomitant]
     Active Substance: PROCATEROL HYDROCHLORIDE
     Indication: ASTHMA
     Route: 055
     Dates: start: 20191018
  10. THEO-DUR [Concomitant]
     Active Substance: THEOPHYLLINE ANHYDROUS
     Indication: ASTHMA
     Route: 048
  11. SYMBICORT [Concomitant]
     Active Substance: BUDESONIDE\FORMOTEROL FUMARATE DIHYDRATE
     Indication: ASTHMA
     Dosage: 3 DOSAGE FORM TWO TIMES A DAY
     Route: 055
     Dates: start: 20191018

REACTIONS (3)
  - Asthma [Recovered/Resolved]
  - Anaphylactic reaction [Recovering/Resolving]
  - Pyrexia [Recovered/Resolved]

NARRATIVE: CASE EVENT DATE: 20191021
